FAERS Safety Report 6417571-6 (Version None)
Quarter: 2009Q4

REPORT INFORMATION
  Report Type: 
  Country: None (occurrence: None)
  Receive Date: 20091028
  Receipt Date: 20091016
  Transmission Date: 20100525
  Serious: Yes (Hospitalization)
  Sender: FDA-Public Use
  Company Number: FR-WYE-H11786609

PATIENT
  Age: 59 Year
  Sex: Female

DRUGS (7)
  1. CORDARONE [Suspect]
     Indication: ATRIAL FLUTTER
     Dosage: 200 MG (FREQUENCY UNSPECIFIED)
     Route: 048
     Dates: start: 20090905, end: 20090912
  2. PREVISCAN [Concomitant]
     Dosage: UNSPECIFIED
     Route: 048
  3. AERIUS [Concomitant]
     Dosage: UNSPECIFIED
     Route: 048
  4. LASILIX [Concomitant]
  5. FORADIL [Concomitant]
     Dosage: UNSPECIFIED
     Route: 055
  6. ISOPTIN [Suspect]
     Indication: ATRIAL FLUTTER
     Route: 048
     Dates: start: 20090905, end: 20090912
  7. TAREG [Concomitant]
     Dosage: UNSPECIFIED
     Route: 048

REACTIONS (3)
  - ANAPHYLACTIC SHOCK [None]
  - HYPOTENSION [None]
  - SYNCOPE [None]
